FAERS Safety Report 13089301 (Version 1)
Quarter: 2017Q1

REPORT INFORMATION
  Report Type: Spontaneous
  Country: US (occurrence: US)
  Receive Date: 20170105
  Receipt Date: 20170105
  Transmission Date: 20170428
  Serious: Yes (Hospitalization)
  Sender: FDA-Public Use
  Company Number: US-JNJFOC-20170101639

PATIENT
  Age: 43 Year
  Sex: Male
  Weight: 91.63 kg

DRUGS (1)
  1. REMICADE [Suspect]
     Active Substance: INFLIXIMAB
     Indication: COLITIS ULCERATIVE
     Route: 042
     Dates: start: 2007, end: 20161102

REACTIONS (1)
  - Histoplasmosis disseminated [Recovering/Resolving]

NARRATIVE: CASE EVENT DATE: 20161129
